FAERS Safety Report 6925536-0 (Version None)
Quarter: 2010Q3

REPORT INFORMATION
  Report Type: 
  Country: None (occurrence: None)
  Receive Date: 20100816
  Receipt Date: 20100809
  Transmission Date: 20110219
  Serious: Yes (Death, Life-Threatening)
  Sender: FDA-Public Use
  Company Number: CN-ROCHE-719912

PATIENT
  Sex: Female
  Weight: 70 kg

DRUGS (2)
  1. MYCOPHENOLATE MOFETIL [Suspect]
     Indication: RENAL TRANSPLANT
     Dosage: 750 MG IN THE MORNING AND 750 MG IN THE EVENING
     Route: 048
     Dates: start: 20020101, end: 20020101
  2. CYCLOSPORINE-A [Concomitant]
     Indication: RENAL TRANSPLANT
     Dosage: TRADE NAME WAS REPORTED AS ^TIAN KE^
     Dates: start: 20020101

REACTIONS (2)
  - HEPATIC FAILURE [None]
  - TRANSAMINASES INCREASED [None]
